FAERS Safety Report 22091244 (Version 1)
Quarter: 2023Q1

REPORT INFORMATION
  Report Type: Report from Study
  Country: US (occurrence: US)
  Receive Date: 20230314
  Receipt Date: 20230314
  Transmission Date: 20230417
  Serious: No
  Sender: FDA-Public Use
  Company Number: US-ABBVIE-4262662

PATIENT
  Age: 30 Year
  Sex: Male

DRUGS (5)
  1. SKYRIZI [Suspect]
     Active Substance: RISANKIZUMAB-RZAA
     Indication: Psoriasis
     Route: 058
     Dates: start: 20220512, end: 20220512
  2. SKYRIZI [Suspect]
     Active Substance: RISANKIZUMAB-RZAA
     Indication: Psoriatic arthropathy
     Route: 058
  3. TAPINAROF [Concomitant]
     Active Substance: TAPINAROF
     Indication: Psoriasis
     Dates: start: 20221230
  4. TAPINAROF [Concomitant]
     Active Substance: TAPINAROF
     Indication: Psoriasis
     Dates: start: 20221230
  5. TAPINAROF [Concomitant]
     Active Substance: TAPINAROF
     Indication: Psoriasis
     Dates: start: 20221230

REACTIONS (1)
  - Psoriasis [Recovering/Resolving]

NARRATIVE: CASE EVENT DATE: 20221230
